FAERS Safety Report 9576228 (Version 1)
Quarter: 2013Q4

REPORT INFORMATION
  Report Type: Spontaneous
  Country: US (occurrence: US)
  Receive Date: 20131001
  Receipt Date: 20131001
  Transmission Date: 20140711
  Serious: No
  Sender: FDA-Public Use
  Company Number: US-AMGEN-USASP2013001655

PATIENT
  Age: 63 Year
  Sex: Female
  Weight: 71.66 kg

DRUGS (11)
  1. ENBREL [Suspect]
     Indication: RHEUMATOID ARTHRITIS
     Dosage: 50 MG, QWK
     Route: 058
  2. PREMARIN [Concomitant]
     Dosage: 0.625 MG, UNK
  3. ZOLOFT [Concomitant]
     Dosage: 20 MG/ML, UNK
  4. METHOTREXATE [Concomitant]
     Dosage: 2.5 MG, UNK
  5. NAPROXEN [Concomitant]
     Dosage: 250 MG, UNK
  6. VITAMIN B COMPLEX [Concomitant]
  7. OSCAL 500 + D [Concomitant]
     Dosage: 500 + 200
  8. TOPIRAMATE [Concomitant]
     Dosage: 25 MG, UNK
  9. FOLIC ACID [Concomitant]
  10. FLAXSEED OIL [Concomitant]
  11. VITAMIN D                          /00107901/ [Concomitant]
     Dosage: 400 UNIT, UNK

REACTIONS (3)
  - Dizziness [Recovered/Resolved]
  - Sinus disorder [Recovered/Resolved]
  - Nasopharyngitis [Recovered/Resolved]
